FAERS Safety Report 23890057 (Version 1)
Quarter: 2024Q2

REPORT INFORMATION
  Report Type: Spontaneous
  Country: US (occurrence: US)
  Receive Date: 20240523
  Receipt Date: 20240523
  Transmission Date: 20240716
  Serious: No
  Sender: FDA-Public Use
  Company Number: US-SANOFI-02051328

PATIENT
  Age: 75 Year
  Sex: Female

DRUGS (2)
  1. LANTUS SOLOSTAR [Suspect]
     Active Substance: INSULIN GLARGINE
     Indication: Type 2 diabetes mellitus
     Dosage: (10 UNITS OF LANTUS SOLOSTAR IN THE MORNING, 10 UNITS AT LUNCH, AND 25 UNIT IN THE EVENING) , TID
  2. HUMALOG [Concomitant]
     Active Substance: INSULIN LISPRO
     Dosage: UNK

REACTIONS (4)
  - Blood disorder [Unknown]
  - Renal disorder [Unknown]
  - Liver disorder [Unknown]
  - Inappropriate schedule of product administration [Unknown]
